FAERS Safety Report 8060984-X (Version None)
Quarter: 2012Q1

REPORT INFORMATION
  Report Type: 
  Country: None (occurrence: None)
  Receive Date: 20120120
  Receipt Date: 20120113
  Transmission Date: 20120608
  Serious: Yes (Hospitalization)
  Sender: FDA-Public Use
  Company Number: FR-MERCK-1201USA02386

PATIENT
  Age: 77 Year
  Sex: Male

DRUGS (16)
  1. MORPHINE SULFATE [Suspect]
     Route: 048
     Dates: start: 20101203, end: 20101207
  2. TRAMADOL HCL [Suspect]
     Dosage: 4 TIMES DAILY
     Route: 048
     Dates: start: 20101207, end: 20101208
  3. MOLSIDOMINE [Concomitant]
     Route: 065
  4. IKOREL [Concomitant]
     Route: 065
  5. BIPERIDYS [Concomitant]
     Route: 065
  6. BRONCHODUAL [Concomitant]
     Route: 065
  7. MORPHINE SULFATE [Suspect]
     Route: 048
     Dates: start: 20101205, end: 20101207
  8. XENETIX [Suspect]
     Route: 042
     Dates: start: 20111205, end: 20111205
  9. ARIXTRA [Concomitant]
     Route: 058
     Dates: start: 20101203, end: 20101204
  10. ASPIRIN [Concomitant]
     Route: 065
  11. COZAAR [Suspect]
     Route: 048
     Dates: end: 20101208
  12. LOVENOX [Concomitant]
     Route: 058
     Dates: start: 20101205
  13. ACETAMINOPHEN [Concomitant]
     Route: 042
     Dates: start: 20101203, end: 20101204
  14. FUROSEMIDE [Suspect]
     Route: 048
     Dates: end: 20101208
  15. DECAPEPTYL (TRIPTORELIN ACETATE) [Concomitant]
     Route: 065
  16. ACETAMINOPHEN [Concomitant]
     Route: 048
     Dates: start: 20101205

REACTIONS (4)
  - RESPIRATORY FAILURE [None]
  - SOMNOLENCE [None]
  - RENAL FAILURE ACUTE [None]
  - INTESTINAL OBSTRUCTION [None]
